FAERS Safety Report 5133060-3 (Version None)
Quarter: 2006Q4

REPORT INFORMATION
  Report Type: 
  Country: None (occurrence: None)
  Receive Date: 20061017
  Receipt Date: 20061004
  Transmission Date: 20070319
  Serious: Yes (Hospitalization)
  Sender: FDA-Public Use
  Company Number: 2004056389

PATIENT
  Age: 14 Year
  Sex: Male
  Weight: 52.5 kg

DRUGS (2)
  1. SILDENAFIL CITRATE [Suspect]
     Indication: PULMONARY HYPERTENSION
     Dosage: 240 MG (80 MG, 3 IN 1 D), ORAL
     Route: 048
     Dates: start: 20040625
  2. ASPIRIN [Concomitant]

REACTIONS (4)
  - CONDITION AGGRAVATED [None]
  - HYPOTHYROIDISM [None]
  - REFUSAL OF TREATMENT BY RELATIVE [None]
  - VENTRICULAR ARRHYTHMIA [None]
